FAERS Safety Report 8455936-1 (Version None)
Quarter: 2012Q2

REPORT INFORMATION
  Report Type: 
  Country: None (occurrence: None)
  Receive Date: 20120621
  Receipt Date: 20120620
  Transmission Date: 20120825
  Serious: Yes (Hospitalization, Other)
  Sender: FDA-Public Use
  Company Number: PHHY2012GB022901

PATIENT
  Age: 55 Year
  Sex: Male
  Weight: 71.4 kg

DRUGS (10)
  1. VELCADE [Suspect]
     Route: 042
     Dates: start: 20101018, end: 20101110
  2. AMOXICILLIN [Concomitant]
     Route: 048
     Dates: start: 20101025
  3. ACETAMINOPHEN [Concomitant]
     Indication: ANALGESIC THERAPY
     Route: 048
     Dates: start: 20101025
  4. DOXORUBICIN HCL [Suspect]
     Dosage: 64 MG, QMO
     Route: 042
     Dates: start: 20101018, end: 20101110
  5. ENOXAPARIN SODIUM [Concomitant]
     Route: 058
     Dates: start: 20101109
  6. DEXAMETHASONE SODIUM POSPHATE [Suspect]
     Indication: MULTIPLE MYELOMA
     Dosage: 160 MG, QMO
     Route: 048
     Dates: start: 20100927, end: 20101017
  7. VELCADE [Suspect]
     Indication: MULTIPLE MYELOMA
     Route: 042
     Dates: start: 20100927
  8. DOXORUBICIN HCL [Suspect]
     Indication: MULTIPLE MYELOMA
     Dosage: 64 MG/H, QMO
     Route: 042
     Dates: start: 20100927, end: 20101017
  9. GABAPENTIN [Concomitant]
     Indication: ANALGESIC THERAPY
     Route: 048
     Dates: start: 20101024
  10. DEXAMETHASONE SODIUM POSPHATE [Suspect]
     Dosage: 160 MG, QMO
     Route: 048
     Dates: start: 20101018, end: 20101109

REACTIONS (3)
  - DIARRHOEA [None]
  - MULTIPLE MYELOMA [None]
  - DRUG INEFFECTIVE [None]
